FAERS Safety Report 8470535-3 (Version None)
Quarter: 2012Q2

REPORT INFORMATION
  Report Type: 
  Country: None (occurrence: None)
  Receive Date: 20120627
  Receipt Date: 20120618
  Transmission Date: 20120825
  Serious: Yes (Other)
  Sender: FDA-Public Use
  Company Number: US-SANOFI-AVENTIS-2012SA043715

PATIENT
  Age: 74 Year
  Sex: Female
  Weight: 79.5 kg

DRUGS (2)
  1. PLAVIX [Suspect]
  2. COUMADIN [Suspect]
     Dates: start: 20090101, end: 20090101

REACTIONS (15)
  - SPINAL COLUMN STENOSIS [None]
  - LIP SWELLING [None]
  - BODY HEIGHT DECREASED [None]
  - CONTUSION [None]
  - GASTROINTESTINAL DISORDER [None]
  - OSTEOPOROSIS [None]
  - PHARYNGEAL OEDEMA [None]
  - PAIN IN EXTREMITY [None]
  - BLOOD BLISTER [None]
  - FLATULENCE [None]
  - WEIGHT DECREASED [None]
  - MALAISE [None]
  - ABDOMINAL DISCOMFORT [None]
  - DIZZINESS [None]
  - ARTHRITIS [None]
